FAERS Safety Report 4577170-8 (Version None)
Quarter: 2005Q1

REPORT INFORMATION
  Report Type: 
  Country: None (occurrence: None)
  Receive Date: 20050208
  Receipt Date: 20050126
  Transmission Date: 20050727
  Serious: Yes (Hospitalization, Other)
  Sender: FDA-Public Use
  Company Number: HQWYE085013AUG03

PATIENT
  Age: 52 Year
  Sex: Female
  Weight: 59.47 kg

DRUGS (2)
  1. PREMPRO [Suspect]
     Indication: HORMONE REPLACEMENT THERAPY
     Dosage: ORAL
     Route: 048
     Dates: start: 19980701, end: 20001001
  2. CATAFLAM (DICLOFENAC SODIUM) [Concomitant]

REACTIONS (18)
  - ANTITHROMBIN III DEFICIENCY [None]
  - ATELECTASIS [None]
  - CARCINOEMBRYONIC ANTIGEN INCREASED [None]
  - DEEP VEIN THROMBOSIS [None]
  - DILATATION ATRIAL [None]
  - DILATATION VENTRICULAR [None]
  - HYPERCOAGULATION [None]
  - LEFT VENTRICULAR FAILURE [None]
  - LIVER DISORDER [None]
  - MITRAL VALVE INCOMPETENCE [None]
  - MYOCARDIAL INFARCTION [None]
  - OVARIAN CANCER [None]
  - PERIPHERAL ISCHAEMIA [None]
  - PLEURAL EFFUSION [None]
  - PULMONARY OEDEMA [None]
  - PULMONARY THROMBOSIS [None]
  - RENAL VEIN THROMBOSIS [None]
  - VENA CAVA THROMBOSIS [None]
